FAERS Safety Report 5256101-1 (Version None)
Quarter: 2007Q1

REPORT INFORMATION
  Report Type: 
  Country: None (occurrence: None)
  Receive Date: 20070306
  Receipt Date: 20070222
  Transmission Date: 20070707
  Serious: Yes (Other)
  Sender: FDA-Public Use
  Company Number: US-JNJFOC-20070205670

PATIENT
  Sex: Female

DRUGS (3)
  1. CONCERTA [Suspect]
     Indication: ATTENTION DEFICIT/HYPERACTIVITY DISORDER
     Route: 048
  2. DEPAKOTE [Concomitant]
     Indication: MIGRAINE
  3. DEPAKOTE [Concomitant]
     Indication: AFFECTIVE DISORDER

REACTIONS (1)
  - OPEN ANGLE GLAUCOMA [None]
